FAERS Safety Report 17572956 (Version 1)
Quarter: 2020Q1

REPORT INFORMATION
  Report Type: Spontaneous
  Country: US (occurrence: US)
  Receive Date: 20200323
  Receipt Date: 20200323
  Transmission Date: 20200409
  Serious: Yes (Hospitalization)
  Sender: FDA-Public Use
  Company Number: US-BAYER-2016-105044

PATIENT
  Age: 59 Year
  Sex: Male

DRUGS (6)
  1. XARELTO [Suspect]
     Active Substance: RIVAROXABAN
     Dosage: 20 MG
     Route: 048
     Dates: start: 201509, end: 20151013
  2. XARELTO [Suspect]
     Active Substance: RIVAROXABAN
     Indication: THROMBOSIS PROPHYLAXIS
     Dosage: 10 MG, UNK
     Route: 048
     Dates: start: 20150321
  3. XARELTO [Suspect]
     Active Substance: RIVAROXABAN
     Indication: THROMBOSIS PROPHYLAXIS
     Dosage: 10 MG
     Route: 048
     Dates: start: 201509
  4. XARELTO [Suspect]
     Active Substance: RIVAROXABAN
     Indication: KNEE ARTHROPLASTY
     Dosage: 10 MG, UNK
     Route: 048
     Dates: start: 201507
  5. BAYER LOW DOSE [Suspect]
     Active Substance: ASPIRIN
     Indication: PRODUCT USED FOR UNKNOWN INDICATION
     Dosage: 81 MG, UNK
     Route: 048
  6. XARELTO [Suspect]
     Active Substance: RIVAROXABAN
     Dosage: 15 MG
     Route: 048
     Dates: start: 201509

REACTIONS (4)
  - Acute kidney injury [Unknown]
  - Gastrointestinal haemorrhage [Unknown]
  - Rectal haemorrhage [Unknown]
  - Cardiac arrest [Unknown]

NARRATIVE: CASE EVENT DATE: 20151013
